FAERS Safety Report 4742894-6 (Version None)
Quarter: 2005Q3

REPORT INFORMATION
  Report Type: 
  Country: None (occurrence: None)
  Receive Date: 20050811
  Receipt Date: 20050802
  Transmission Date: 20060218
  Serious: Yes (Death, Hospitalization)
  Sender: FDA-Public Use
  Company Number: US-KINGPHARMUSA00001-K200501029

PATIENT
  Age: 81 Year
  Sex: Female

DRUGS (4)
  1. SYNERCID [Suspect]
     Indication: ENDOCARDITIS
     Dosage: 1.5 G, QD
     Route: 042
     Dates: end: 20050623
  2. TARGOCID [Suspect]
     Indication: ENDOCARDITIS
     Dosage: 1.2 G, QD
     Route: 042
     Dates: start: 20050608, end: 20050626
  3. EUPANTOL [Suspect]
     Dosage: 40 MG, QD
     Route: 042
     Dates: end: 20050627
  4. CANCIDAS [Suspect]
     Indication: ENDOCARDITIS
     Dosage: 50 MG, QD
     Route: 042
     Dates: start: 20050611, end: 20050623

REACTIONS (20)
  - ALANINE AMINOTRANSFERASE INCREASED [None]
  - AMMONIA INCREASED [None]
  - ANURIA [None]
  - ASPARTATE AMINOTRANSFERASE INCREASED [None]
  - BLOOD CREATININE INCREASED [None]
  - BLOOD UREA INCREASED [None]
  - COAGULATION FACTOR V LEVEL DECREASED [None]
  - CONDITION AGGRAVATED [None]
  - GENERAL PHYSICAL HEALTH DETERIORATION [None]
  - HAEMOGLOBIN DECREASED [None]
  - HEPATIC FAILURE [None]
  - HEPATIC VEIN THROMBOSIS [None]
  - HEPATOCELLULAR DAMAGE [None]
  - LACTIC ACIDOSIS [None]
  - LIVER DISORDER [None]
  - OLIGURIA [None]
  - PLATELET COUNT DECREASED [None]
  - PROTHROMBIN TIME PROLONGED [None]
  - RENAL FAILURE [None]
  - THROMBOSIS [None]
